FAERS Safety Report 10199796 (Version 2)
Quarter: 2014Q2

REPORT INFORMATION
  Report Type: Spontaneous
  Country: US (occurrence: US)
  Receive Date: 20140527
  Receipt Date: 20140527
  Transmission Date: 20141212
  Serious: No
  Sender: FDA-Public Use
  Company Number: US-BAXTER-2014BAX025389

PATIENT
  Sex: Female

DRUGS (1)
  1. DIANEAL LOW CALCIUM [Suspect]
     Indication: PERITONEAL DIALYSIS
     Route: 033

REACTIONS (10)
  - Fatigue [Unknown]
  - Confusional state [Unknown]
  - Hypoglycaemia [Unknown]
  - Decreased appetite [Unknown]
  - Myalgia [Unknown]
  - Blood potassium decreased [Unknown]
  - Blood sodium decreased [Unknown]
  - Dyspnoea [Unknown]
  - Nausea [Unknown]
  - Muscle spasms [Unknown]
